FAERS Safety Report 21811926 (Version 3)
Quarter: 2025Q3

REPORT INFORMATION
  Report Type: Report from Study
  Country: US (occurrence: US)
  Receive Date: 20230103
  Receipt Date: 20250710
  Transmission Date: 20251021
  Serious: Yes (Hospitalization)
  Sender: JAZZ
  Company Number: US-GW PHARMA-2022-US-035918

PATIENT
  Age: 45 Year
  Sex: Female

DRUGS (7)
  1. EPIDIOLEX [Suspect]
     Active Substance: CANNABIDIOL
     Indication: Epilepsy
     Dosage: 2.55 MILLILITER, BID (255 MG)
     Route: 048
     Dates: start: 20220924
  2. EPIDIOLEX [Suspect]
     Active Substance: CANNABIDIOL
     Dosage: 5.1 MILLILITER, BID FOR 7 DAYS
     Route: 048
  3. EPIDIOLEX [Suspect]
     Active Substance: CANNABIDIOL
     Dosage: 7.65 MILLILITER, BID FOR 23 DAYS
     Route: 048
  4. CLOBAZAM [Concomitant]
     Active Substance: CLOBAZAM
  5. GABAPENTIN [Concomitant]
     Active Substance: GABAPENTIN
  6. LEVETIRACETAM [Concomitant]
     Active Substance: LEVETIRACETAM
  7. ONFI [Concomitant]
     Active Substance: CLOBAZAM

REACTIONS (8)
  - Hospitalisation [Not Recovered/Not Resolved]
  - Liver disorder [Not Recovered/Not Resolved]
  - Somnolence [Not Recovered/Not Resolved]
  - Fatigue [Not Recovered/Not Resolved]
  - Weight increased [Not Recovered/Not Resolved]
  - Insomnia [Recovering/Resolving]
  - Off label use [Unknown]
  - Product dose omission issue [Unknown]

NARRATIVE: CASE EVENT DATE: 20221102
